FAERS Safety Report 5370259-5 (Version None)
Quarter: 2007Q2

REPORT INFORMATION
  Report Type: 
  Country: None (occurrence: None)
  Receive Date: 20070614
  Receipt Date: 20070223
  Transmission Date: 20071010
  Serious: No
  Sender: FDA-Public Use
  Company Number: BDI-009181

PATIENT
  Age: 45 Year
  Sex: Male
  Weight: 90 kg

DRUGS (3)
  1. MULTIHANCE [Suspect]
     Indication: ASTHENIA
     Dosage: 10 ML ONCE IV
     Route: 042
     Dates: start: 20070220, end: 20070220
  2. MULTIHANCE [Suspect]
     Indication: NUCLEAR MAGNETIC RESONANCE IMAGING BRAIN
     Dosage: 10 ML ONCE IV
     Route: 042
     Dates: start: 20070220, end: 20070220
  3. MULTIHANCE [Suspect]
     Indication: TREMOR
     Dosage: 10 ML ONCE IV
     Route: 042
     Dates: start: 20070220, end: 20070220

REACTIONS (1)
  - NAUSEA [None]
